FAERS Safety Report 14542202 (Version 1)
Quarter: 2018Q1

REPORT INFORMATION
  Report Type: Spontaneous
  Country: AT (occurrence: AT)
  Receive Date: 20180216
  Receipt Date: 20180216
  Transmission Date: 20180509
  Serious: Yes (Other)
  Sender: FDA-Public Use
  Company Number: AT-OTSUKA-DJ20126175

PATIENT
  Sex: Female
  Weight: 68 kg

DRUGS (1)
  1. ABILIFY [Suspect]
     Active Substance: ARIPIPRAZOLE
     Indication: PRODUCT USED FOR UNKNOWN INDICATION
     Dosage: UNK
     Route: 065

REACTIONS (6)
  - Deformity [Unknown]
  - Syncope [Unknown]
  - Weight increased [Unknown]
  - Skin reaction [Unknown]
  - Suicidal ideation [Unknown]
  - Overdose [Unknown]
